FAERS Safety Report 9353862 (Version 1)
Quarter: 2013Q2

REPORT INFORMATION
  Report Type: Report from Study
  Country: IT (occurrence: IT)
  Receive Date: 20130618
  Receipt Date: 20130618
  Transmission Date: 20140414
  Serious: Yes (Other)
  Sender: FDA-Public Use
  Company Number: IT-SANOFI-AVENTIS-2013SA061338

PATIENT
  Sex: 0

DRUGS (5)
  1. FLUOROURACIL [Suspect]
     Indication: RECTAL ADENOCARCINOMA
     Dosage: FIVE DAILY CONTINUOUS INFUSION
     Route: 042
  2. OXALIPLATIN [Suspect]
     Indication: RECTAL ADENOCARCINOMA
     Dosage: 2 HR INFUSION ON FIRST DAY OF EVERY WEEK OF RADIOTHERAPY
     Route: 042
  3. THERAPEUTIC RADIOPHARMACEUTICALS [Concomitant]
  4. DEXAMETHASONE [Concomitant]
  5. ONDANSETRON [Concomitant]

REACTIONS (1)
  - Proctitis [Unknown]
